FAERS Safety Report 7028151-6 (Version None)
Quarter: 2010Q4

REPORT INFORMATION
  Report Type: 
  Country: None (occurrence: None)
  Receive Date: 20101005
  Receipt Date: 20100924
  Transmission Date: 20110411
  Serious: Yes (Other)
  Sender: FDA-Public Use
  Company Number: AU-SANOFI-AVENTIS-2010SA057557

PATIENT
  Age: 40 Year
  Sex: Female

DRUGS (3)
  1. ARAVA [Suspect]
     Route: 048
     Dates: start: 20090410
  2. METHOTREXATE [Concomitant]
  3. FOLIC ACID [Concomitant]

REACTIONS (5)
  - FATIGUE [None]
  - HEADACHE [None]
  - LETHARGY [None]
  - MALIGNANT MELANOMA [None]
  - SUTURE RELATED COMPLICATION [None]
